FAERS Safety Report 25824159 (Version 2)
Quarter: 2025Q4

REPORT INFORMATION
  Report Type: Spontaneous
  Country: US (occurrence: US)
  Receive Date: 20250919
  Receipt Date: 20251017
  Transmission Date: 20260117
  Serious: Yes (Other)
  Sender: RANBAXY
  Company Number: US-SUN PHARMACEUTICAL INDUSTRIES LTD-2025R1-526748

PATIENT
  Age: 85 Year
  Sex: Male

DRUGS (2)
  1. ISOSORBIDE [Suspect]
     Active Substance: ISOSORBIDE
     Indication: Angina pectoris
     Dosage: UNK
     Route: 065
  2. RANOLAZINE [Suspect]
     Active Substance: RANOLAZINE
     Indication: Angina pectoris
     Dosage: UNK
     Route: 065

REACTIONS (2)
  - Vocal cord paralysis [Unknown]
  - Cardiogenic shock [Unknown]
